FAERS Safety Report 8611142-9 (Version None)
Quarter: 2012Q3

REPORT INFORMATION
  Report Type: 
  Country: None (occurrence: None)
  Receive Date: 20120822
  Receipt Date: 20120810
  Transmission Date: 20120928
  Serious: Yes (Other)
  Sender: FDA-Public Use
  Company Number: US-PFIZER INC-2012194667

PATIENT
  Age: 63 Year
  Sex: Male

DRUGS (3)
  1. DILANTIN-125 [Suspect]
     Dosage: 100 MG, 3X/DAY
  2. LASIX [Concomitant]
     Dosage: 40MG,UNK
  3. LANOXIN [Concomitant]
     Dosage: 0.125 MG

REACTIONS (3)
  - RENAL FAILURE ACUTE [None]
  - TUBULOINTERSTITIAL NEPHRITIS [None]
  - HYPERSENSITIVITY [None]
